FAERS Safety Report 7712578-0 (Version None)
Quarter: 2011Q3

REPORT INFORMATION
  Report Type: 
  Country: None (occurrence: None)
  Receive Date: 20110822
  Receipt Date: 20110804
  Transmission Date: 20111222
  Serious: Yes (Other)
  Sender: FDA-Public Use
  Company Number: 2011MA011351

PATIENT
  Age: 52 Year
  Sex: Male

DRUGS (5)
  1. TENOFOVIR [Suspect]
  2. DARUNAVIR HYDRATE [Suspect]
  3. EMTRICITABINE [Suspect]
  4. RITONAVIR [Suspect]
  5. ACYCLOVIR [Suspect]
     Indication: HIV INFECTION

REACTIONS (7)
  - UVEITIS [None]
  - RETINAL SCAR [None]
  - MACULOPATHY [None]
  - CYTOMEGALOVIRUS INFECTION [None]
  - CYSTOID MACULAR OEDEMA [None]
  - IMMUNE RECONSTITUTION SYNDROME [None]
  - VITREOUS DEGENERATION [None]
